FAERS Safety Report 8008276-9 (Version None)
Quarter: 2011Q4

REPORT INFORMATION
  Report Type: 
  Country: None (occurrence: None)
  Receive Date: 20111222
  Receipt Date: 20111222
  Transmission Date: 20120403
  Serious: Yes (Hospitalization, Other)
  Sender: FDA-Public Use
  Company Number: None

PATIENT
  Sex: Male
  Weight: 20.9 kg

DRUGS (2)
  1. NORDITROPIN FLEXPRO [Suspect]
     Indication: BODY HEIGHT BELOW NORMAL
     Dosage: 0.8 MG QD SUBCUTANEOUS
     Route: 058
     Dates: start: 20090128, end: 20110829
  2. NORDITROPIN FLEXPRO [Suspect]
     Indication: GROWTH HORMONE DEFICIENCY
     Dosage: 0.8 MG QD SUBCUTANEOUS
     Route: 058
     Dates: start: 20090128, end: 20110829

REACTIONS (2)
  - CRANIOPHARYNGIOMA [None]
  - NEOPLASM RECURRENCE [None]
